FAERS Safety Report 8184520-2 (Version None)
Quarter: 2012Q1

REPORT INFORMATION
  Report Type: 
  Country: None (occurrence: None)
  Receive Date: 20120305
  Receipt Date: 20120228
  Transmission Date: 20120608
  Serious: No
  Sender: FDA-Public Use
  Company Number: US-PFIZER INC-2011168432

PATIENT
  Age: 84 Year
  Sex: Male

DRUGS (4)
  1. ZOLPIDEM [Suspect]
     Indication: INSOMNIA
     Dosage: 30 MG, UNK
     Route: 048
  2. LUNESTA [Suspect]
     Indication: SLEEP DISORDER
     Dosage: 3 MG, UNK
     Dates: start: 20100101
  3. SONATA [Suspect]
     Dosage: 30MG, 1X/DAY
     Route: 048
  4. LUNESTA [Suspect]
     Indication: INSOMNIA
     Dosage: 6 MG, UNK

REACTIONS (4)
  - DRUG INEFFECTIVE [None]
  - MIDDLE INSOMNIA [None]
  - TACHYPHRENIA [None]
  - ABNORMAL BEHAVIOUR [None]
